FAERS Safety Report 4655655-3 (Version None)
Quarter: 2005Q2

REPORT INFORMATION
  Report Type: 
  Country: None (occurrence: None)
  Receive Date: 20050505
  Receipt Date: 20050421
  Transmission Date: 20051028
  Serious: Yes (Hospitalization, Other)
  Sender: FDA-Public Use
  Company Number: KII-2005-0016341

PATIENT
  Age: 27 Year
  Sex: Female
  Weight: 97.9 kg

DRUGS (6)
  1. OXYCONTIN [Suspect]
     Dosage: ORAL
     Route: 048
  2. TYLENOL PM (DIPHENHYDRAMINE) [Suspect]
     Dosage: SEE TEXT, ORAL
     Route: 048
  3. ONDANSETRON HCL [Suspect]
     Dosage: 4 MG, SEE TEXT, ORAL
     Route: 048
  4. ZOLPIDEM TARTRATE [Suspect]
     Dosage: ORAL
     Route: 048
  5. CYCLOBENZAPRINE HCL [Suspect]
     Dosage: ORAL
     Route: 048
  6. SSRI () [Suspect]
     Dosage: SEE TEXT

REACTIONS (12)
  - ALANINE AMINOTRANSFERASE INCREASED [None]
  - ASPARTATE AMINOTRANSFERASE INCREASED [None]
  - BLOOD CREATINE PHOSPHOKINASE INCREASED [None]
  - BLOOD CREATINE PHOSPHOKINASE MB INCREASED [None]
  - BLOOD PRESSURE DECREASED [None]
  - BODY TEMPERATURE INCREASED [None]
  - CONFUSIONAL STATE [None]
  - DYSARTHRIA [None]
  - INTENTIONAL MISUSE [None]
  - MULTIPLE DRUG OVERDOSE [None]
  - PROTHROMBIN TIME PROLONGED [None]
  - SOMNOLENCE [None]
